FAERS Safety Report 12648564 (Version 3)
Quarter: 2016Q3

REPORT INFORMATION
  Report Type: Spontaneous
  Country: CN (occurrence: CN)
  Receive Date: 20160812
  Receipt Date: 20160930
  Transmission Date: 20161109
  Serious: Yes (Other)
  Sender: FDA-Public Use
  Company Number: CN-ASTRAZENECA-2016SE85178

PATIENT
  Age: 67 Year
  Sex: Male

DRUGS (6)
  1. CASODEX [Suspect]
     Active Substance: BICALUTAMIDE
     Dosage: DAILY
     Route: 048
     Dates: start: 20160205
  2. ZOLADEX [Suspect]
     Active Substance: GOSERELIN ACETATE
     Indication: PROSTATE CANCER
     Route: 058
     Dates: start: 20160831
  3. CEREBROLYSIN [Concomitant]
     Active Substance: CEREBROLYSIN
     Indication: CEREBRAL INFARCTION
  4. INDAPAMIDE. [Concomitant]
     Active Substance: INDAPAMIDE
     Indication: HYPERTENSION
  5. ASPIRIN. [Concomitant]
     Active Substance: ASPIRIN
     Indication: HYPERTENSION
     Dosage: ENTERIC-COATED TABLETS ONE TABLET DAILY
  6. ZOLADEX [Suspect]
     Active Substance: GOSERELIN ACETATE
     Indication: PROSTATE CANCER
     Route: 058
     Dates: start: 20160210

REACTIONS (1)
  - Malignant neoplasm progression [Unknown]
